FAERS Safety Report 14303474 (Version 1)
Quarter: 2017Q4

REPORT INFORMATION
  Report Type: Spontaneous
  Country: JP (occurrence: JP)
  Receive Date: 20171219
  Receipt Date: 20171219
  Transmission Date: 20180321
  Serious: Yes (Other)
  Sender: FDA-Public Use
  Company Number: JP-OTSUKA-2016_021837

PATIENT
  Age: 38 Year
  Sex: Female

DRUGS (3)
  1. ABILIFY [Suspect]
     Active Substance: ARIPIPRAZOLE
     Indication: SCHIZOPHRENIA
     Dosage: 6 MG, QD
     Route: 048
     Dates: start: 20160908
  2. ABILIFY [Suspect]
     Active Substance: ARIPIPRAZOLE
     Dosage: 9 MG, QD
     Route: 048
     Dates: end: 201603
  3. ABILIFY [Suspect]
     Active Substance: ARIPIPRAZOLE
     Dosage: 7.5 MG, QD
     Route: 048
     Dates: start: 201604, end: 20160908

REACTIONS (2)
  - Hip surgery [Unknown]
  - Premature delivery [Unknown]

NARRATIVE: CASE EVENT DATE: 201612
